FAERS Safety Report 17414767 (Version 2)
Quarter: 2020Q1

REPORT INFORMATION
  Report Type: Spontaneous
  Country: CN (occurrence: CN)
  Receive Date: 20200213
  Receipt Date: 20200309
  Transmission Date: 20200409
  Serious: Yes (Other)
  Sender: FDA-Public Use
  Company Number: CN-NOVOPROD-710880

PATIENT
  Age: 61 Year
  Sex: Male
  Weight: 72 kg

DRUGS (2)
  1. NOVOLIN R [Suspect]
     Active Substance: INSULIN HUMAN
     Dosage: 28 IU, QD (20U IN THE MORNING AND 8U IN THE EVENING) (BOUGHT FROM LOCAL STORE)
     Route: 058
     Dates: start: 20200102
  2. NOVOLIN R [Suspect]
     Active Substance: INSULIN HUMAN
     Indication: TYPE 2 DIABETES MELLITUS
     Dosage: 28 IU, QD (20U IN THE MORNING AND 8U IN THE EVENING), FROM MANY YEARS
     Route: 058

REACTIONS (4)
  - Vertigo [Recovered/Resolved]
  - Hypoglycaemic seizure [Recovered/Resolved]
  - Hypoglycaemia [Recovering/Resolving]
  - Suspected product quality issue [Unknown]

NARRATIVE: CASE EVENT DATE: 20200119
